FAERS Safety Report 4805592-6 (Version None)
Quarter: 2005Q4

REPORT INFORMATION
  Report Type: 
  Country: None (occurrence: None)
  Receive Date: 20051018
  Receipt Date: 20051007
  Transmission Date: 20060501
  Serious: Yes (Other)
  Sender: FDA-Public Use
  Company Number: 2005140837

PATIENT
  Age: 41 Year
  Sex: Male

DRUGS (4)
  1. CADUET [Suspect]
     Indication: HYPERTENSION
     Dosage: (5 MG)
     Dates: start: 20050901
  2. CALAN [Suspect]
     Indication: HYPERTENSION
     Dosage: 240 MG (240 MG, 1 IN 1 D), ORAL
     Route: 048
     Dates: start: 19880101
  3. VERAPAMIL [Suspect]
     Indication: HYPERTENSION
     Dosage: 240 MG (240 MG, 1 IN 1 D), ORAL
     Route: 048
     Dates: start: 20020101
  4. DEPAKOTE [Suspect]
     Indication: SCHIZOPHRENIA

REACTIONS (3)
  - BLOOD PRESSURE INCREASED [None]
  - SCHIZOPHRENIA [None]
  - WEIGHT INCREASED [None]
